FAERS Safety Report 5277909-2 (Version None)
Quarter: 2007Q1

REPORT INFORMATION
  Report Type: 
  Country: None (occurrence: None)
  Receive Date: 20070321
  Receipt Date: 20070314
  Transmission Date: 20070707
  Serious: Yes (Other)
  Sender: FDA-Public Use
  Company Number: 011695

PATIENT
  Sex: Female

DRUGS (5)
  1. MEDROXYPROGESTERONE [Suspect]
     Dosage: ORAL
     Route: 048
     Dates: start: 19900101, end: 20030101
  2. AMEN [Suspect]
     Dosage: ORAL
     Route: 048
     Dates: start: 19900101, end: 20030101
  3. CYCRIN [Suspect]
     Dosage: ORAL
     Route: 048
     Dates: start: 19900101, end: 20030101
  4. PREMARIN [Suspect]
     Dosage: ORAL
     Route: 048
     Dates: start: 19900101, end: 20030101
  5. PROVERA [Suspect]
     Dosage: ORAL
     Route: 048
     Dates: start: 19900101, end: 20030101

REACTIONS (1)
  - BREAST CANCER FEMALE [None]
